FAERS Safety Report 24760313 (Version 1)
Quarter: 2024Q4

REPORT INFORMATION
  Report Type: Spontaneous
  Country: FR (occurrence: FR)
  Receive Date: 20241220
  Receipt Date: 20241220
  Transmission Date: 20250114
  Serious: Yes (Life-Threatening, Other)
  Sender: GLAXOSMITHKLINE
  Company Number: None

PATIENT

DRUGS (3)
  1. JEMPERLI [Suspect]
     Active Substance: DOSTARLIMAB\DOSTARLIMAB-GXLY
     Indication: Endometrial cancer metastatic
     Dosage: 1 DF, SINGLE (C1)
     Route: 042
     Dates: start: 20241108, end: 20241108
  2. CARBOPLATIN [Suspect]
     Active Substance: CARBOPLATIN
     Indication: Endometrial cancer metastatic
     Dosage: 1 DF, SINGLE (C1)
     Route: 042
     Dates: start: 20241108, end: 20241108
  3. PACLITAXEL [Suspect]
     Active Substance: PACLITAXEL
     Indication: Endometrial cancer metastatic
     Dosage: 1 DF, SINGLE (C1)
     Route: 042
     Dates: start: 20241108, end: 20241108

REACTIONS (3)
  - Septic shock [Recovered/Resolved]
  - Chest pain [Recovered/Resolved]
  - Gastrointestinal disorder [Recovered/Resolved]

NARRATIVE: CASE EVENT DATE: 20241112
